FAERS Safety Report 9400373 (Version 1)
Quarter: 2013Q3

REPORT INFORMATION
  Report Type: Spontaneous
  Country: IT (occurrence: IT)
  Receive Date: 20130715
  Receipt Date: 20130715
  Transmission Date: 20140515
  Serious: Yes (Hospitalization)
  Sender: FDA-Public Use
  Company Number: IT-TEVA-417184ISR

PATIENT
  Age: 66 Year
  Sex: Male

DRUGS (10)
  1. CARVEDILOL [Suspect]
     Dosage: 25 MILLIGRAM DAILY;
     Route: 048
     Dates: start: 20110701, end: 20130609
  2. ISOPTIN 40MG [Suspect]
     Dosage: 80 MILLIGRAM DAILY;
     Route: 048
     Dates: start: 20110101, end: 20130609
  3. IGROTON 25MG [Concomitant]
     Dates: start: 20110101, end: 20130609
  4. ASCRIPTIN [Concomitant]
     Dates: start: 20110101, end: 20130609
  5. AVODART 0.5MG [Concomitant]
     Dosage: SOFT CAPSULES
     Dates: start: 20110101, end: 20130609
  6. ESAPENT 1GR [Concomitant]
     Dosage: SOFT CAPSULES
     Dates: start: 20110101, end: 20130609
  7. RAMIPRIL [Concomitant]
     Dates: start: 20110101, end: 20130609
  8. METFORMINA CLORIDRATO [Concomitant]
     Dates: start: 20110101, end: 20130609
  9. AMLODIPINA BESILATO [Concomitant]
     Dates: start: 20110101, end: 20130609
  10. SIMVASTATINA [Concomitant]
     Dates: start: 20110101, end: 20130609

REACTIONS (2)
  - Atrial fibrillation [Recovering/Resolving]
  - Asthenia [Recovering/Resolving]
